FAERS Safety Report 14361305 (Version 2)
Quarter: 2018Q1

REPORT INFORMATION
  Report Type: Spontaneous
  Country: HU (occurrence: HU)
  Receive Date: 20180108
  Receipt Date: 20180201
  Transmission Date: 20180509
  Serious: Yes (Other)
  Sender: FDA-Public Use
  Company Number: PHHY2018HU000636

PATIENT
  Age: 50 Year
  Sex: Female

DRUGS (4)
  1. INSULIN [Concomitant]
     Active Substance: INSULIN NOS
     Indication: DIABETES MELLITUS
     Route: 065
  2. MITOMYCIN C [Concomitant]
     Active Substance: MITOMYCIN
     Indication: SQUAMOUS CELL CARCINOMA
     Dosage: 1 DROP, (5 TIMES A DAY)
     Route: 047
  3. TOBRADEX [Suspect]
     Active Substance: DEXAMETHASONE\TOBRAMYCIN
     Indication: PRODUCT USED FOR UNKNOWN INDICATION
     Dosage: 1 DROP, (5 TIMES A DAY)
     Route: 047
  4. MITOMYCIN C [Concomitant]
     Active Substance: MITOMYCIN
     Dosage: 1 DROP, (5 TIMES A DAY)
     Route: 047

REACTIONS (1)
  - Symblepharon [Unknown]
